FAERS Safety Report 13169805 (Version 1)
Quarter: 2017Q1

REPORT INFORMATION
  Report Type: Spontaneous
  Country: US (occurrence: US)
  Receive Date: 20170131
  Receipt Date: 20170131
  Transmission Date: 20170428
  Serious: Yes (Other)
  Sender: FDA-Public Use
  Company Number: US-ABBVIE-16K-163-1629460-00

PATIENT
  Age: 55 Year
  Sex: Female
  Weight: 77.18 kg

DRUGS (11)
  1. HUMIRA [Suspect]
     Active Substance: ADALIMUMAB
     Indication: RHEUMATOID ARTHRITIS
     Route: 058
     Dates: end: 201504
  2. GABAPENTIN. [Concomitant]
     Active Substance: GABAPENTIN
     Indication: NEURALGIA
     Dosage: 3-4 TIMES A DAY
     Route: 048
     Dates: start: 2000
  3. METHOTREXATE. [Concomitant]
     Active Substance: METHOTREXATE
     Indication: RHEUMATOID ARTHRITIS
     Dates: start: 2011, end: 2016
  4. PREDNISONE. [Concomitant]
     Active Substance: PREDNISONE
     Indication: RHEUMATOID ARTHRITIS
     Dates: start: 2015
  5. LISINOPRIL. [Concomitant]
     Active Substance: LISINOPRIL
     Indication: BLOOD PRESSURE MEASUREMENT
     Dosage: 20/12.5 MG
     Dates: start: 2011
  6. TRAMADOL. [Concomitant]
     Active Substance: TRAMADOL
     Indication: PAIN
     Dates: start: 1999
  7. FOLIC ACID. [Concomitant]
     Active Substance: FOLIC ACID
     Indication: VITAMIN SUPPLEMENTATION
     Dates: start: 2011
  8. XELJANZ [Suspect]
     Active Substance: TOFACITINIB CITRATE
     Indication: RHEUMATOID ARTHRITIS
     Route: 048
     Dates: start: 201505
  9. HYDROCODONE [Concomitant]
     Active Substance: HYDROCODONE
     Indication: PAIN
     Dosage: 5-325 TABLET FOR ABOUT 5 YEARS
     Dates: start: 2011, end: 2014
  10. HYDROCODONE [Concomitant]
     Active Substance: HYDROCODONE
     Dosage: 10-325
     Dates: start: 2014
  11. METHOTREXATE. [Concomitant]
     Active Substance: METHOTREXATE
     Dates: start: 2016

REACTIONS (7)
  - Drug ineffective [Unknown]
  - Hot flush [Not Recovered/Not Resolved]
  - Road traffic accident [Unknown]
  - Cardiac arrest [Unknown]
  - Fatigue [Not Recovered/Not Resolved]
  - Joint injury [Unknown]
  - Muscle spasms [Not Recovered/Not Resolved]

NARRATIVE: CASE EVENT DATE: 201410
